FAERS Safety Report 13423912 (Version 1)
Quarter: 2017Q2

REPORT INFORMATION
  Report Type: Spontaneous
  Country: US (occurrence: US)
  Receive Date: 20170410
  Receipt Date: 20170410
  Transmission Date: 20170830
  Serious: No
  Sender: FDA-Public Use
  Company Number: US-MISSION PHARMACAL COMPANY-1065225

PATIENT
  Age: 82 Year
  Sex: Male

DRUGS (2)
  1. UROCIT-K [Suspect]
     Active Substance: POTASSIUM CITRATE
     Indication: NEPHROLITHIASIS
  2. LITHOSTAT [Concomitant]
     Active Substance: ACETOHYDROXAMIC ACID
     Route: 065

REACTIONS (1)
  - Rash [Unknown]
